FAERS Safety Report 11046957 (Version 1)
Quarter: 2015Q2

REPORT INFORMATION
  Report Type: Spontaneous
  Country: US (occurrence: None)
  Receive Date: 20150417
  Receipt Date: 20150417
  Transmission Date: 20150821
  Serious: Yes (Other)
  Sender: FDA-Public Use
  Company Number: None

PATIENT
  Age: 33 Year
  Sex: Female

DRUGS (1)
  1. LUPRON DEPOT [Suspect]
     Active Substance: LEUPROLIDE ACETATE
     Dosage: Q 3 MONTHS

REACTIONS (3)
  - Metrorrhagia [None]
  - Vaginal haemorrhage [None]
  - Amenorrhoea [None]

NARRATIVE: CASE EVENT DATE: 20150415
